FAERS Safety Report 20619320 (Version 1)
Quarter: 2022Q1

REPORT INFORMATION
  Report Type: Other
  Country: US (occurrence: None)
  Receive Date: 20220322
  Receipt Date: 20220322
  Transmission Date: 20220424
  Serious: Yes (Hospitalization)
  Sender: FDA-Public Use
  Company Number: US-ROCHE-3049178

PATIENT
  Sex: Female

DRUGS (2)
  1. XELODA [Suspect]
     Active Substance: CAPECITABINE
     Indication: Rectal cancer
     Dosage: TAKE 2 TABLETS BY MOUTH TWICE A DAY FOR 14 DAYS WITH 7 DAY REST
     Route: 048
  2. XELODA [Suspect]
     Active Substance: CAPECITABINE
     Dosage: TAKE 1 TABLET BY MOUTH TWICE A DAY FOR 14 DAYS WITH 7 DAY REST
     Route: 048

REACTIONS (1)
  - Infection [Unknown]
